FAERS Safety Report 22054783 (Version 1)
Quarter: 2023Q1

REPORT INFORMATION
  Report Type: Spontaneous
  Country: CN (occurrence: CN)
  Receive Date: 20230302
  Receipt Date: 20230302
  Transmission Date: 20230418
  Serious: Yes (Other)
  Sender: FDA-Public Use
  Company Number: CN-002147023-NVSC2022CN183814

PATIENT
  Age: 88 Year
  Sex: Male
  Weight: 50 kg

DRUGS (3)
  1. OCTREOTIDE ACETATE [Suspect]
     Active Substance: OCTREOTIDE ACETATE
     Indication: Gastrointestinal haemorrhage
     Dosage: 1.000 ML, TID
     Route: 058
     Dates: start: 20220720, end: 20220722
  2. OCTREOTIDE ACETATE [Suspect]
     Active Substance: OCTREOTIDE ACETATE
  3. OCTREOTIDE ACETATE [Suspect]
     Active Substance: OCTREOTIDE ACETATE

REACTIONS (3)
  - Bradycardia [Recovering/Resolving]
  - Atrioventricular block second degree [Unknown]
  - Atrioventricular block first degree [Unknown]

NARRATIVE: CASE EVENT DATE: 20220722
